FAERS Safety Report 5273307-6 (Version None)
Quarter: 2007Q1

REPORT INFORMATION
  Report Type: 
  Country: None (occurrence: None)
  Receive Date: 20070319
  Receipt Date: 20070307
  Transmission Date: 20070707
  Serious: Yes (Death, Hospitalization)
  Sender: FDA-Public Use
  Company Number: GXKR2007GB02395

PATIENT
  Age: 79 Year
  Sex: Female

DRUGS (5)
  1. TRAMADOL HCL [Suspect]
     Indication: SCIATICA
  2. AMITRIPTYLINE HCL [Suspect]
     Indication: DEPRESSION
     Dosage: 75 MG, UNK, ORAL
     Route: 048
  3. CO-PROXAMOL (DEXTROPROPOXYPHENE HYDROCHLORIDE, PARACETAMOL) [Concomitant]
  4. MORPHINE SULFATE [Concomitant]
  5. ROFECOXIB [Concomitant]

REACTIONS (22)
  - BLOOD CREATINE PHOSPHOKINASE INCREASED [None]
  - BLOOD POTASSIUM DECREASED [None]
  - BRADYCARDIA [None]
  - CIRCULATORY COLLAPSE [None]
  - COMA [None]
  - CONFUSIONAL STATE [None]
  - CONVULSION [None]
  - DELIRIUM [None]
  - DRUG INTERACTION [None]
  - HALLUCINATION [None]
  - HYPERHIDROSIS [None]
  - HYPOTENSION [None]
  - MALAISE [None]
  - METABOLIC ACIDOSIS [None]
  - MUSCLE RIGIDITY [None]
  - PYREXIA [None]
  - RESPIRATORY FAILURE [None]
  - SEPSIS [None]
  - SEROTONIN SYNDROME [None]
  - SHOCK [None]
  - TACHYCARDIA [None]
  - UNRESPONSIVE TO STIMULI [None]
